FAERS Safety Report 9032401 (Version 1)
Quarter: 2013Q1

REPORT INFORMATION
  Report Type: Spontaneous
  Country: DE (occurrence: None)
  Receive Date: 20130108
  Receipt Date: 20130108
  Transmission Date: 20140127
  Serious: Yes (Other)
  Sender: FDA-Public Use
  Company Number: GER/GER/12/0027253

PATIENT
  Age: 38 Year
  Sex: Male

DRUGS (1)
  1. OLANZAPIN BETA 2.5 MG FILMTABLETTEN (OLANZAPINE) [Suspect]
     Indication: PRODUCT USED FOR UNKNOWN INDICATION
     Dosage: 1 TABLET PER DAY.
     Route: 048
     Dates: start: 201211

REACTIONS (3)
  - Restlessness [None]
  - Palpitations [None]
  - Anxiety [None]
